FAERS Safety Report 20645353 (Version 5)
Quarter: 2024Q2

REPORT INFORMATION
  Report Type: Report from Study
  Country: US (occurrence: US)
  Receive Date: 20220328
  Receipt Date: 20240418
  Transmission Date: 20240716
  Serious: Yes (Hospitalization, Other)
  Sender: FDA-Public Use
  Company Number: US-Merck Healthcare KGaA-9090714

PATIENT
  Age: 64 Year
  Sex: Male
  Weight: 83 kg

DRUGS (3)
  1. REBIF [Suspect]
     Active Substance: INTERFERON BETA-1A
     Indication: Multiple sclerosis
     Route: 058
     Dates: start: 20050314, end: 20070702
  2. REBIF [Suspect]
     Active Substance: INTERFERON BETA-1A
     Dosage: REBIF: REBI-JECT II
     Route: 058
     Dates: start: 20090713
  3. REBIF [Suspect]
     Active Substance: INTERFERON BETA-1A
     Route: 058
     Dates: start: 20200303

REACTIONS (24)
  - Cardiac failure congestive [Unknown]
  - Multiple sclerosis relapse [Unknown]
  - Urinary retention [Unknown]
  - Hypotonic urinary bladder [Unknown]
  - Urinary tract infection [Recovering/Resolving]
  - Coronary arterial stent insertion [Unknown]
  - Fatigue [Unknown]
  - Back pain [Unknown]
  - Chromaturia [Unknown]
  - Memory impairment [Unknown]
  - Head injury [Unknown]
  - Diarrhoea [Unknown]
  - Fall [Unknown]
  - Balance disorder [Recovering/Resolving]
  - Brain fog [Recovering/Resolving]
  - Constipation [Not Recovered/Not Resolved]
  - Vomiting [Unknown]
  - Muscular weakness [Unknown]
  - Hypoaesthesia [Not Recovered/Not Resolved]
  - Bladder dilatation [Unknown]
  - Abdominal pain upper [Not Recovered/Not Resolved]
  - Grip strength decreased [Unknown]
  - Device occlusion [Unknown]
  - Extra dose administered [Unknown]

NARRATIVE: CASE EVENT DATE: 20190401
